FAERS Safety Report 16073018 (Version 6)
Quarter: 2019Q2

REPORT INFORMATION
  Report Type: Spontaneous
  Country: CN (occurrence: CN)
  Receive Date: 20190314
  Receipt Date: 20190627
  Transmission Date: 20190711
  Serious: Yes (Other)
  Sender: FDA-Public Use
  Company Number: CN-GLAXOSMITHKLINE-CN2019GSK039437

PATIENT
  Age: 14 Year
  Sex: Female
  Weight: 49 kg

DRUGS (2)
  1. SERETIDE [Suspect]
     Active Substance: FLUTICASONE PROPIONATE\SALMETEROL XINAFOATE
     Indication: ASTHMA
     Dosage: 1 PUFF(S), 1D
     Route: 055
     Dates: start: 20190201
  2. MEASLES MUMPS RUBELLA VACCINE [Suspect]
     Active Substance: MEASLES-MUMPS-RUBELLA VIRUS VACCINE
     Indication: PROPHYLAXIS
     Dates: start: 20181116, end: 20181116

REACTIONS (28)
  - Asthma [Recovered/Resolved]
  - Emphysema [Unknown]
  - Malaise [Unknown]
  - Arthropathy [Unknown]
  - Temporomandibular joint syndrome [Recovering/Resolving]
  - Chest pain [Unknown]
  - Weight increased [Unknown]
  - Cough [Recovered/Resolved]
  - Face oedema [Recovering/Resolving]
  - Mobility decreased [Unknown]
  - Jaw disorder [Unknown]
  - Respiration abnormal [Unknown]
  - Wheezing [Recovered/Resolved]
  - Nasopharyngitis [Unknown]
  - Decreased immune responsiveness [Unknown]
  - Back pain [Unknown]
  - Nasal pruritus [Unknown]
  - Eye pruritus [Unknown]
  - Obstructive airways disorder [Unknown]
  - Pyrexia [Unknown]
  - Dust allergy [Unknown]
  - Mycotic allergy [Unknown]
  - Alveolar aeration excessive [Unknown]
  - Dyspnoea [Unknown]
  - Mouth ulceration [Recovered/Resolved]
  - Lethargy [Unknown]
  - Pneumothorax [Unknown]
  - Immune system disorder [Unknown]

NARRATIVE: CASE EVENT DATE: 201811
